FAERS Safety Report 6830614-0 (Version None)
Quarter: 2010Q3

REPORT INFORMATION
  Report Type: 
  Country: None (occurrence: None)
  Receive Date: 20100712
  Receipt Date: 20100629
  Transmission Date: 20110219
  Serious: Yes (Other)
  Sender: FDA-Public Use
  Company Number: JP-JNJFOC-20100702185

PATIENT

DRUGS (1)
  1. INFLIXIMAB [Suspect]
     Indication: PSORIASIS
     Dosage: 3 INFUSIONS TOTAL AT WEEKS 2, 4 AND 8
     Route: 042

REACTIONS (1)
  - SALIVARY GLAND CANCER [None]
